FAERS Safety Report 6285503-X (Version None)
Quarter: 2009Q3

REPORT INFORMATION
  Report Type: 
  Country: None (occurrence: None)
  Receive Date: 20090727
  Receipt Date: 20090715
  Transmission Date: 20100115
  Serious: Yes (Other)
  Sender: FDA-Public Use
  Company Number: PHEH2007US14304

PATIENT
  Sex: Male

DRUGS (7)
  1. AREDIA [Suspect]
     Indication: PROSTATE CANCER METASTATIC
     Dates: start: 20040701
  2. ZOMETA [Suspect]
     Indication: PROSTATE CANCER METASTATIC
     Dosage: 4 MG, QMO
     Dates: start: 20040701
  3. PREDNISONE TAB [Concomitant]
  4. ZOCOR [Concomitant]
  5. PRINIVIL [Concomitant]
  6. GABAPENTIN [Concomitant]
  7. CHEMOTHERAPEUTICS NOS [Concomitant]

REACTIONS (23)
  - ABNORMAL LOSS OF WEIGHT [None]
  - ANAEMIA [None]
  - ANGINA PECTORIS [None]
  - ANXIETY [None]
  - ARTHRITIS [None]
  - BACK PAIN [None]
  - BONE DISORDER [None]
  - BREATH ODOUR [None]
  - CARDIAC FAILURE CONGESTIVE [None]
  - DEBRIDEMENT [None]
  - DEFORMITY [None]
  - DENTURE WEARER [None]
  - EMOTIONAL DISTRESS [None]
  - EPISTAXIS [None]
  - FISTULA [None]
  - GINGIVITIS [None]
  - METASTASES TO LARGE INTESTINE [None]
  - MOUTH ULCERATION [None]
  - NAUSEA [None]
  - OSTEONECROSIS [None]
  - PAIN [None]
  - TYPE 2 DIABETES MELLITUS [None]
  - WOUND DEHISCENCE [None]
